FAERS Safety Report 4534840-5 (Version None)
Quarter: 2004Q4

REPORT INFORMATION
  Report Type: 
  Country: None (occurrence: None)
  Receive Date: 20041222
  Receipt Date: 20040423
  Transmission Date: 20050328
  Serious: No
  Sender: FDA-Public Use
  Company Number: US-BRISTOL-MYERS SQUIBB COMPANY-12569000

PATIENT
  Age: 65 Year
  Sex: Male
  Weight: 88 kg

DRUGS (3)
  1. PRAVACHOL [Suspect]
     Indication: BLOOD CHOLESTEROL INCREASED
     Dosage: DOSAGE FORM = TABLET
     Route: 048
  2. ASPIRIN [Concomitant]
  3. ATENOLOL [Concomitant]

REACTIONS (2)
  - MUSCLE CRAMP [None]
  - MUSCULAR WEAKNESS [None]
